FAERS Safety Report 19566347 (Version 5)
Quarter: 2021Q4

REPORT INFORMATION
  Report Type: Spontaneous
  Country: IN (occurrence: IN)
  Receive Date: 20210714
  Receipt Date: 20211206
  Transmission Date: 20220303
  Serious: Yes (Other)
  Sender: FDA-Public Use
  Company Number: IN-PFIZER INC-2020484026

PATIENT
  Age: 60 Year
  Sex: Female
  Weight: 66 kg

DRUGS (3)
  1. PALBOCICLIB [Suspect]
     Active Substance: PALBOCICLIB
     Indication: Breast cancer metastatic
     Dosage: 125 MG, 1X/DAY, 3 WEEK ON 1 WEEK OFF
     Route: 048
     Dates: start: 20201022
  2. PALBOCICLIB [Suspect]
     Active Substance: PALBOCICLIB
     Dosage: 100 MG, 1X/DAY
     Route: 048
  3. FULVETRAZ [Concomitant]
     Dosage: UNK, MONTHLY
     Dates: start: 202010

REACTIONS (8)
  - Hypothyroidism [Unknown]
  - Flatulence [Unknown]
  - Vomiting [Unknown]
  - Hepatitis B virus test positive [Unknown]
  - White blood cell count decreased [Unknown]
  - Neoplasm progression [Unknown]
  - Rectal lesion [Unknown]
  - Off label use [Unknown]
